FAERS Safety Report 14174098 (Version 1)
Quarter: 2017Q4

REPORT INFORMATION
  Report Type: Spontaneous
  Country: US (occurrence: US)
  Receive Date: 20171109
  Receipt Date: 20171109
  Transmission Date: 20180321
  Serious: No
  Sender: FDA-Public Use
  Company Number: US-ASTRAZENECA-2017SF06644

PATIENT
  Age: 29066 Day
  Sex: Male

DRUGS (8)
  1. VERAPAMIL [Concomitant]
     Active Substance: VERAPAMIL HYDROCHLORIDE
     Indication: ARRHYTHMIA
     Dosage: 180.0MG UNKNOWN
  2. ISOSORBIDE. [Concomitant]
     Active Substance: ISOSORBIDE
     Indication: ARRHYTHMIA
     Dosage: 30.0MG UNKNOWN
  3. BROVANA [Concomitant]
     Active Substance: ARFORMOTEROL TARTRATE
     Route: 055
  4. TUDORZA PRESSAIR [Suspect]
     Active Substance: ACLIDINIUM BROMIDE
     Indication: PULMONARY FUNCTION TEST ABNORMAL
     Route: 055
     Dates: start: 20160701
  5. MEDICATION FOR BLOOD PRESSURE [Concomitant]
     Indication: BLOOD PRESSURE ABNORMAL
  6. TUDORZA PRESSAIR [Suspect]
     Active Substance: ACLIDINIUM BROMIDE
     Indication: CHRONIC OBSTRUCTIVE PULMONARY DISEASE
     Route: 055
     Dates: start: 20160701
  7. DIGOXIN. [Concomitant]
     Active Substance: DIGOXIN
     Indication: ARRHYTHMIA
     Dosage: 125.0UG UNKNOWN
  8. WARFARIN [Concomitant]
     Active Substance: WARFARIN
     Indication: ARRHYTHMIA

REACTIONS (4)
  - Device malfunction [Unknown]
  - Intentional product misuse [Unknown]
  - Drug dose omission [Unknown]
  - Lung disorder [Unknown]

NARRATIVE: CASE EVENT DATE: 20160701
